FAERS Safety Report 5900872-5 (Version None)
Quarter: 2008Q3

REPORT INFORMATION
  Report Type: 
  Country: None (occurrence: None)
  Receive Date: 20080929
  Receipt Date: 20071121
  Transmission Date: 20090109
  Serious: No
  Sender: FDA-Public Use
  Company Number: A0695626A

PATIENT
  Age: 6 Year
  Sex: Female

DRUGS (1)
  1. LAMICTAL [Suspect]
     Route: 048
     Dates: start: 20070827

REACTIONS (2)
  - EMOTIONAL DISORDER [None]
  - NEGATIVISM [None]
